FAERS Safety Report 24079245 (Version 1)
Quarter: 2024Q3

REPORT INFORMATION
  Report Type: Spontaneous
  Country: US (occurrence: US)
  Receive Date: 20240711
  Receipt Date: 20240711
  Transmission Date: 20241017
  Serious: No
  Sender: SANDOZ
  Company Number: US-002147023-NVSC2023US186325

PATIENT
  Age: 77 Year
  Sex: Female

DRUGS (5)
  1. PREDNISOLONE ACETATE [Suspect]
     Active Substance: PREDNISOLONE ACETATE
     Indication: Neurotrophic keratopathy
     Dosage: UNK, BID
     Route: 061
  2. CYCLOSPORINE [Concomitant]
     Active Substance: CYCLOSPORINE
     Indication: Neurotrophic keratopathy
     Dosage: UNK, TID
     Route: 065
  3. TOBRAMYCIN [Concomitant]
     Active Substance: TOBRAMYCIN\TOBRAMYCIN SULFATE
     Indication: Neurotrophic keratopathy
     Dosage: UNK, TID
     Route: 065
  4. TRIFLURIDINE [Concomitant]
     Active Substance: TRIFLURIDINE
     Indication: Ophthalmic herpes simplex
     Dosage: UNK
     Route: 061
  5. VALACYCLOVIR [Concomitant]
     Active Substance: VALACYCLOVIR HYDROCHLORIDE
     Indication: Ophthalmic herpes simplex
     Dosage: UNK
     Route: 065

REACTIONS (3)
  - Neurotrophic keratopathy [Unknown]
  - Condition aggravated [Unknown]
  - Product use in unapproved indication [Unknown]
